FAERS Safety Report 6215247-1 (Version None)
Quarter: 2009Q2

REPORT INFORMATION
  Report Type: 
  Country: None (occurrence: None)
  Receive Date: 20090604
  Receipt Date: 20090528
  Transmission Date: 20091009
  Serious: Yes (Hospitalization, Other)
  Sender: FDA-Public Use
  Company Number: US-ABBOTT-09P-163-0576649-00

PATIENT
  Sex: Male
  Weight: 124.4 kg

DRUGS (4)
  1. HUMIRA [Suspect]
     Indication: COLITIS ULCERATIVE
     Route: 058
     Dates: start: 20090213
  2. ADVAIR HFA [Concomitant]
     Indication: ASTHMA
  3. ALBUTEROL [Concomitant]
     Indication: ASTHMA
  4. UNKNOWN NASAL SPRAY [Concomitant]
     Indication: HYPERSENSITIVITY
     Route: 045

REACTIONS (3)
  - CELLULITIS [None]
  - MALAISE [None]
  - OEDEMA PERIPHERAL [None]
